FAERS Safety Report 5789089-5 (Version None)
Quarter: 2008Q2

REPORT INFORMATION
  Report Type: 
  Country: None (occurrence: None)
  Receive Date: 20080626
  Receipt Date: 20071211
  Transmission Date: 20081010
  Serious: No
  Sender: FDA-Public Use
  Company Number: US-ASTRAZENECA-2007UW28249

PATIENT
  Age: 39 Year
  Sex: Female
  Weight: 83.9 kg

DRUGS (1)
  1. PULMICORT FLEXHALER [Suspect]
     Indication: ASTHMA
     Route: 055
     Dates: start: 20071201

REACTIONS (4)
  - ASTHMA [None]
  - DYSPNOEA [None]
  - HEAD DISCOMFORT [None]
  - MALAISE [None]
